FAERS Safety Report 8856704 (Version 1)
Quarter: 2012Q4

REPORT INFORMATION
  Report Type: Spontaneous
  Country: GB (occurrence: None)
  Receive Date: 20121019
  Receipt Date: 20121019
  Transmission Date: 20130627
  Serious: Yes (Life-Threatening, Disabling, Other)
  Sender: FDA-Public Use
  Company Number: AUR-APL-2012-04379

PATIENT
  Age: 50 Year
  Sex: Female
  Weight: 50 kg

DRUGS (1)
  1. RISPERIDONE [Suspect]
     Indication: BEHAVIOUR DISORDER
     Dates: start: 20080924

REACTIONS (8)
  - Abnormal behaviour [None]
  - Extrapyramidal disorder [None]
  - Pleurothotonus [None]
  - Aphasia [None]
  - Dystonia [None]
  - Drooling [None]
  - Dyspnoea [None]
  - Tardive dyskinesia [None]
